FAERS Safety Report 23665810 (Version 2)
Quarter: 2024Q2

REPORT INFORMATION
  Report Type: Spontaneous
  Country: JP (occurrence: JP)
  Receive Date: 20240323
  Receipt Date: 20240616
  Transmission Date: 20240716
  Serious: Yes (Death, Hospitalization)
  Sender: FDA-Public Use
  Company Number: JP-AMGEN-JPNSP2024025541

PATIENT
  Sex: Male

DRUGS (2)
  1. LUMAKRAS [Suspect]
     Active Substance: SOTORASIB
     Indication: K-ras gene mutation
     Dosage: 960 MILLIGRAM, QD
     Route: 048
  2. LUMAKRAS [Suspect]
     Active Substance: SOTORASIB
     Indication: Non-small cell lung cancer
     Dosage: SWITCHED TO TUBE FEEDING
     Route: 065
     Dates: end: 202402

REACTIONS (3)
  - Non-small cell lung cancer [Fatal]
  - COVID-19 pneumonia [Fatal]
  - Oral disorder [Unknown]

NARRATIVE: CASE EVENT DATE: 20240201
